FAERS Safety Report 19153357 (Version 4)
Quarter: 2021Q2

REPORT INFORMATION
  Report Type: Spontaneous
  Country: US (occurrence: US)
  Receive Date: 20210419
  Receipt Date: 20210623
  Transmission Date: 20210717
  Serious: No
  Sender: FDA-Public Use
  Company Number: US-BEH-2021130620

PATIENT
  Age: 56 Year
  Sex: Female

DRUGS (5)
  1. HIZENTRA [Suspect]
     Active Substance: HUMAN IMMUNOGLOBULIN G
     Indication: BLOOD IMMUNOGLOBULIN G DECREASED
     Dosage: 10 GRAM, QW
     Route: 058
     Dates: start: 2017
  2. HIZENTRA [Suspect]
     Active Substance: HUMAN IMMUNOGLOBULIN G
     Dosage: UNK
     Route: 058
  3. HIZENTRA [Suspect]
     Active Substance: HUMAN IMMUNOGLOBULIN G
     Dosage: 10 GRAMS
     Route: 058
     Dates: start: 20190725
  4. EPIPEN [Concomitant]
     Active Substance: EPINEPHRINE
  5. HIZENTRA [Suspect]
     Active Substance: HUMAN IMMUNOGLOBULIN G
     Indication: HYPOGAMMAGLOBULINAEMIA
     Dosage: UNK
     Route: 058
     Dates: start: 20210406

REACTIONS (13)
  - Urticaria [Unknown]
  - Anxiety [Unknown]
  - Infusion site pruritus [Recovered/Resolved]
  - Pruritus [Recovered/Resolved]
  - Respiration abnormal [Recovered/Resolved]
  - Ill-defined disorder [Unknown]
  - Flushing [Recovered/Resolved]
  - Urticaria [Recovered/Resolved]
  - Recalled product administered [Recovered/Resolved]
  - Recalled product administered [Unknown]
  - Rash [Unknown]
  - Throat irritation [Unknown]
  - Throat irritation [Recovered/Resolved]

NARRATIVE: CASE EVENT DATE: 20210406
